FAERS Safety Report 18044470 (Version 1)
Quarter: 2020Q3

REPORT INFORMATION
  Report Type: Other
  Country: CA (occurrence: CA)
  Receive Date: 20200720
  Receipt Date: 20200720
  Transmission Date: 20201103
  Serious: Yes (Other)
  Sender: FDA-Public Use
  Company Number: CA-BECTON DICKINSON-2020BDN00191

PATIENT
  Age: 46 Year
  Sex: Female
  Weight: 75 kg

DRUGS (19)
  1. PANTOTHENIC ACID [Suspect]
     Active Substance: PANTOTHENIC ACID
     Route: 064
  2. METHOTREXATE. [Concomitant]
     Active Substance: METHOTREXATE
  3. LYRICA [Concomitant]
     Active Substance: PREGABALIN
  4. ACETAMINOPHEN. [Concomitant]
     Active Substance: ACETAMINOPHEN
  5. AVAMYS [Concomitant]
     Active Substance: FLUTICASONE FUROATE
  6. FOLIC ACID. [Concomitant]
     Active Substance: FOLIC ACID
  7. METFORMIN [Suspect]
     Active Substance: METFORMIN HYDROCHLORIDE
     Route: 064
  8. NIFEDIPINE. [Suspect]
     Active Substance: NIFEDIPINE
  9. METHYLPREDNISOLONE NOS [Concomitant]
     Active Substance: METHYLPREDNISOLONE
  10. CHLORAPREP [Suspect]
     Active Substance: CHLORHEXIDINE GLUCONATE\ISOPROPYL ALCOHOL
  11. SULFASALAZINE. [Concomitant]
     Active Substance: SULFASALAZINE
  12. INSULIN [Suspect]
     Active Substance: INSULIN NOS
     Route: 064
  13. AMOXICILLIN. [Concomitant]
     Active Substance: AMOXICILLIN
  14. CITALOPRAM [Concomitant]
     Active Substance: CITALOPRAM HYDROBROMIDE
  15. DIPHENHYDRAMINE. [Concomitant]
     Active Substance: DIPHENHYDRAMINE
  16. METHYLDOPA. [Suspect]
     Active Substance: METHYLDOPA
     Route: 064
  17. RITUXAN [Suspect]
     Active Substance: RITUXIMAB
     Indication: RHEUMATOID ARTHRITIS
     Dosage: 1000 MG
     Route: 042
  18. SILDENAFIL. [Suspect]
     Active Substance: SILDENAFIL
     Route: 064
  19. RESTASIS [Concomitant]
     Active Substance: CYCLOSPORINE

REACTIONS (18)
  - Blood pressure diastolic increased [Not Recovered/Not Resolved]
  - Blood pressure systolic increased [Not Recovered/Not Resolved]
  - Pain [Not Recovered/Not Resolved]
  - Blood pressure systolic abnormal [Not Recovered/Not Resolved]
  - Dyspnoea [Not Recovered/Not Resolved]
  - Erythema [Not Recovered/Not Resolved]
  - Herpes zoster [Not Recovered/Not Resolved]
  - Pruritus [Not Recovered/Not Resolved]
  - Therapeutic product effect decreased [Not Recovered/Not Resolved]
  - Weight decreased [Not Recovered/Not Resolved]
  - Chest discomfort [Not Recovered/Not Resolved]
  - Depression [Not Recovered/Not Resolved]
  - Blood pressure diastolic abnormal [Not Recovered/Not Resolved]
  - Somnolence [Not Recovered/Not Resolved]
  - Stress [Not Recovered/Not Resolved]
  - Heart rate decreased [Not Recovered/Not Resolved]
  - Rheumatoid arthritis [Not Recovered/Not Resolved]
  - Ovarian cyst [Not Recovered/Not Resolved]
